FAERS Safety Report 9338928 (Version 3)
Quarter: 2013Q3

REPORT INFORMATION
  Report Type: Spontaneous
  Country: US (occurrence: US)
  Receive Date: 20130610
  Receipt Date: 20130802
  Transmission Date: 20140515
  Serious: Yes (Other)
  Sender: FDA-Public Use
  Company Number: US-PFIZER INC-2013174151

PATIENT
  Age: 61 Year
  Sex: Female
  Weight: 75.28 kg

DRUGS (4)
  1. EFFEXOR [Suspect]
     Indication: DEPRESSION
     Dosage: 150 MG, DAILY
     Dates: start: 2007
  2. MELOXICAM [Concomitant]
     Indication: ARTHRITIS
     Dosage: 15 MG, DAILY
  3. SIMVASTATIN [Concomitant]
     Indication: BLOOD CHOLESTEROL ABNORMAL
     Dosage: SPLITTING THE 40MG TABLET, DAILY
  4. LISINOPRIL / HYDROCHLOROTHIAZIDE [Concomitant]
     Indication: BLOOD PRESSURE ABNORMAL
     Dosage: 20MG/25MG, DAILY

REACTIONS (2)
  - Uterine cancer [Unknown]
  - Depression [Unknown]
